FAERS Safety Report 24841669 (Version 1)
Quarter: 2025Q1

REPORT INFORMATION
  Report Type: Spontaneous
  Country: CA (occurrence: CA)
  Receive Date: 20250114
  Receipt Date: 20250114
  Transmission Date: 20250408
  Serious: Yes (Death, Other)
  Sender: MERCK
  Company Number: CA-009507513-2501CAN003119

PATIENT
  Age: 66 Year
  Sex: Male

DRUGS (4)
  1. KEYTRUDA [Suspect]
     Active Substance: PEMBROLIZUMAB
     Route: 042
  2. BIMATOPROST [Concomitant]
     Active Substance: BIMATOPROST
     Route: 065
  3. CANDESARTAN [Concomitant]
     Active Substance: CANDESARTAN
     Route: 065
  4. PREGABALIN [Concomitant]
     Active Substance: PREGABALIN
     Route: 065

REACTIONS (11)
  - Asthenia [Fatal]
  - Cardiac failure acute [Fatal]
  - Dysphagia [Fatal]
  - Eyelid ptosis [Fatal]
  - Hepatic enzyme increased [Fatal]
  - Immune-mediated hepatitis [Fatal]
  - Myasthenia gravis [Fatal]
  - Myocarditis [Fatal]
  - Myositis [Fatal]
  - Resuscitation [Fatal]
  - Transaminases increased [Fatal]
